FAERS Safety Report 23807107 (Version 2)
Quarter: 2025Q1

REPORT INFORMATION
  Report Type: Spontaneous
  Country: US (occurrence: US)
  Receive Date: 20240502
  Receipt Date: 20250108
  Transmission Date: 20250409
  Serious: Yes (Other)
  Sender: Kilitch Healthcare
  Company Number: US-KHC-000001

PATIENT

DRUGS (1)
  1. POLYVINYL ALCOHOL [Suspect]
     Active Substance: POLYVINYL ALCOHOL
     Indication: Product used for unknown indication
     Route: 065

REACTIONS (17)
  - Vision blurred [Unknown]
  - Eye pain [Unknown]
  - Eye discharge [Unknown]
  - Erythema [Unknown]
  - Eye pruritus [Unknown]
  - Periorbital swelling [Unknown]
  - Skin discolouration [Unknown]
  - Eye swelling [Unknown]
  - Foreign body sensation in eyes [Unknown]
  - Excessive eye blinking [Unknown]
  - Hypoaesthesia eye [Unknown]
  - Ear swelling [Unknown]
  - Gaze palsy [Unknown]
  - Sensory disturbance [Unknown]
  - Pyrexia [Unknown]
  - Product formulation issue [Unknown]
  - Thrombosis [Unknown]
